FAERS Safety Report 4718322-3 (Version None)
Quarter: 2005Q3

REPORT INFORMATION
  Report Type: 
  Country: None (occurrence: None)
  Receive Date: 20050718
  Receipt Date: 20050718
  Transmission Date: 20060218
  Serious: Yes (Other)
  Sender: FDA-Public Use
  Company Number: None

PATIENT
  Age: 69 Year
  Sex: Male
  Weight: 66 kg

DRUGS (1)
  1. FLUORESCEIN INJECTION 100 MG/ML , 5 ML VIAL AKORN [Suspect]
     Indication: ANGIOGRAM
     Dosage: 500 MG ONE TIME DOSE IV
     Route: 042
     Dates: start: 20050603, end: 20050603

REACTIONS (3)
  - INFUSION RELATED REACTION [None]
  - THROAT IRRITATION [None]
  - WHEEZING [None]
